FAERS Safety Report 6895840-3 (Version None)
Quarter: 2010Q3

REPORT INFORMATION
  Report Type: 
  Country: None (occurrence: None)
  Receive Date: 20100802
  Receipt Date: 20100728
  Transmission Date: 20110219
  Serious: Yes (Other)
  Sender: FDA-Public Use
  Company Number: HK-PFIZER INC-2010095591

PATIENT
  Age: 80 Year
  Sex: Female

DRUGS (2)
  1. CELEBREX [Suspect]
     Dosage: 200 MG, 2X/DAY
  2. COLCHICINE [Concomitant]
     Dosage: UNK

REACTIONS (2)
  - FLUID RETENTION [None]
  - INAPPROPRIATE ANTIDIURETIC HORMONE SECRETION [None]
